FAERS Safety Report 4380446-0 (Version None)
Quarter: 2004Q2

REPORT INFORMATION
  Report Type: 
  Country: None (occurrence: None)
  Receive Date: 20040614
  Receipt Date: 20040601
  Transmission Date: 20050107
  Serious: Yes (Hospitalization, Other)
  Sender: FDA-Public Use
  Company Number: 2004032205

PATIENT
  Age: 33 Year
  Sex: Female
  Weight: 48.9885 kg

DRUGS (31)
  1. VFEND [Suspect]
     Indication: ASPERGILLOSIS
     Dosage: 400 MG (200 MG, 2 IN 1 D) ORAL
     Route: 048
     Dates: start: 20031001
  2. METHYLPREDNISOLONE [Suspect]
     Indication: OPTIC NERVE DISORDER
     Dosage: (500 MG, 1 D), INTRAVENOUS
     Route: 042
     Dates: start: 20040101
  3. TACROLIMUS (TACROLIMUS) [Concomitant]
  4. MYCOPHENOLATE MOFETIL (MYCOPHENOLATE MOFETIL) [Concomitant]
  5. PREDNISONE TAB [Concomitant]
  6. AMLODIPINE BESYLATE [Concomitant]
  7. ALENDRONATE SODIUM [Concomitant]
  8. BACTRIM [Concomitant]
  9. VALACICLOVIR HYDROCHLORIDE (VALACICLOVIR HYDROCHLORIDE) [Concomitant]
  10. PANCRELIPASE (PANCRELIPASE) [Concomitant]
  11. CALCIUM CARBONATE (CALCIUM CARBONATE) [Concomitant]
  12. URSODEOXYCHOLIC ACID (URSODEOXYCHOLIC ACID) [Concomitant]
  13. ESOMEPRAZOLE (ESOMEPRAZOLE) [Concomitant]
  14. RANITIDINE HYDROCHLORIDE [Concomitant]
  15. MULTIVITAMINS (ASCORBIC ACID ERGOCALCIFEROL, FOLIC ACID, NICOTINAMIDE, [Concomitant]
  16. ASCORBIC ACID [Concomitant]
  17. TOCOPHEROL CONCENTRATE CAP [Concomitant]
  18. PHYTONADIONE [Concomitant]
  19. POTASSIUM (POTASSIUM) [Concomitant]
  20. MAGNESIUM OXIDE (MAGNESIUM OXIDE) [Concomitant]
  21. EUGYNON (ETHINYLESTRADIOL, LEVONORGESTREL) [Concomitant]
  22. INSULIN GLARGINE (INSULIN GLARGINE) [Concomitant]
  23. INSULIN LISPRO (INSULIN LISPRO) [Concomitant]
  24. RIMANTADINE HYDROCHLORIDE (RIMANTADINE HYDROCHLORIDE) [Concomitant]
  25. DYAZIDE [Concomitant]
  26. MACROGOL (MACROGOL) [Concomitant]
  27. BUDESONIDE (BUDESONIDE) [Concomitant]
  28. SERETIDE MITE (FLUTICASONE PROPIONATE, SALMETEROL XINAFOATE) [Concomitant]
  29. TOBRAMYCIN [Concomitant]
  30. COMBIVENT [Concomitant]
  31. TRIAMCINOLONE ACETONIDE [Concomitant]

REACTIONS (6)
  - BLOOD GLUCOSE INCREASED [None]
  - DYSPNOEA EXACERBATED [None]
  - LUNG INFECTION PSEUDOMONAL [None]
  - OPTIC NEURITIS [None]
  - PRODUCTIVE COUGH [None]
  - PYREXIA [None]
